FAERS Safety Report 9315017 (Version 1)
Quarter: 2013Q2

REPORT INFORMATION
  Report Type: Spontaneous
  Country: IT (occurrence: IT)
  Receive Date: 20130529
  Receipt Date: 20130529
  Transmission Date: 20140414
  Serious: Yes (Hospitalization)
  Sender: FDA-Public Use
  Company Number: IT-FRI-1000045393

PATIENT
  Age: 71 Year
  Sex: Male

DRUGS (4)
  1. NEBIVOLOL [Suspect]
     Dosage: 5 MG
     Route: 048
     Dates: start: 20120107, end: 20130106
  2. APROVEL [Suspect]
     Dosage: 150 MG
     Route: 048
     Dates: start: 20120107, end: 20130106
  3. NORVASC [Suspect]
     Dosage: 10 MG
     Route: 048
     Dates: start: 20120106, end: 20130105
  4. NITROGLICERINA [Suspect]
     Dosage: 15 MG
     Route: 062
     Dates: start: 20120107, end: 20130106

REACTIONS (2)
  - Hypotension [Recovering/Resolving]
  - Presyncope [Recovering/Resolving]
